FAERS Safety Report 5125603-0 (Version None)
Quarter: 2006Q4

REPORT INFORMATION
  Report Type: 
  Country: None (occurrence: None)
  Receive Date: 20061006
  Receipt Date: 20060928
  Transmission Date: 20070319
  Serious: No
  Sender: FDA-Public Use
  Company Number: TPA2006A00561

PATIENT
  Age: 72 Year
  Sex: Male
  Weight: 72.5755 kg

DRUGS (5)
  1. ACTOS [Suspect]
     Indication: DIABETES MELLITUS NON-INSULIN-DEPENDENT
     Dosage: 15 MG, 1 IN 1 D, PER ORAL
     Route: 048
     Dates: start: 20050515, end: 20060328
  2. LIPITOR [Concomitant]
  3. ATENOLOL [Concomitant]
  4. METFORMIN HCL [Concomitant]
  5. MULTIVITAMIN [Concomitant]

REACTIONS (2)
  - CATARACT [None]
  - MACULAR OEDEMA [None]
